FAERS Safety Report 9026817 (Version 1)
Quarter: 2013Q1

REPORT INFORMATION
  Report Type: Spontaneous
  Country: SR (occurrence: None)
  Receive Date: 20130109
  Receipt Date: 20130109
  Transmission Date: 20140127
  Serious: Yes (Death, Hospitalization)
  Sender: FDA-Public Use
  Company Number: B0856426A

PATIENT
  Age: 30 Year
  Sex: Female

DRUGS (5)
  1. ABACAVIR SULPHATE [Suspect]
  2. LAMIVUDINE-HIV [Suspect]
  3. STAVUDINE [Suspect]
  4. NEVIRAPINE [Suspect]
  5. ZIDOVUDINE [Suspect]

REACTIONS (15)
  - Fanconi syndrome [None]
  - Dyspnoea [None]
  - Constipation [None]
  - Vomiting [None]
  - Respiratory rate increased [None]
  - Blood pressure increased [None]
  - Heart rate increased [None]
  - Oxygen saturation decreased [None]
  - Blood pH decreased [None]
  - Hypokalaemia [None]
  - Hypophosphataemia [None]
  - Blood lactate dehydrogenase increased [None]
  - Proteinuria [None]
  - Hepatic steatosis [None]
  - Metabolic acidosis [None]
